FAERS Safety Report 8585992-1 (Version None)
Quarter: 2012Q3

REPORT INFORMATION
  Report Type: 
  Country: None (occurrence: None)
  Receive Date: 20120810
  Receipt Date: 20120730
  Transmission Date: 20120928
  Serious: Yes (Hospitalization)
  Sender: FDA-Public Use
  Company Number: JP-EISAI INC-E7389-02790-SPO-JP

PATIENT
  Sex: Female

DRUGS (13)
  1. ONEALFA [Concomitant]
     Route: 048
     Dates: end: 20120712
  2. GRAN [Concomitant]
     Route: 058
     Dates: start: 20120604
  3. DECADRON PHOSPHATE [Concomitant]
     Route: 041
     Dates: start: 20120528
  4. ASPARA-CA [Concomitant]
     Route: 048
     Dates: end: 20120724
  5. ISOTONIC SODIUM CHLORIDE SOLUTION [Concomitant]
     Route: 041
     Dates: start: 20120528
  6. HALAVEN [Suspect]
     Indication: BREAST CANCER
     Dosage: UNKNOWN
     Route: 041
     Dates: start: 20120528
  7. LIPITOR [Concomitant]
     Indication: HYPERLIPIDAEMIA
     Route: 048
     Dates: start: 20120517
  8. RALOXIFENE HYDROCHLORIDE [Concomitant]
     Route: 048
  9. AZUNOL [Concomitant]
     Dosage: 60 G ON FIRST TWO DAYS, 20 G ON THIRD DAY.
     Dates: start: 20120719, end: 20120721
  10. ONEALFA [Concomitant]
     Route: 048
     Dates: start: 20120724
  11. LASIX [Concomitant]
     Dosage: 20 MG INITIALLY, INCREASING TO 30 MG AND THEN 40 MG
     Dates: start: 20120614
  12. FAMOTIDINE [Concomitant]
     Route: 048
     Dates: start: 20120614
  13. MAXIPIME [Concomitant]
     Route: 041
     Dates: start: 20120701

REACTIONS (1)
  - DISSEMINATED INTRAVASCULAR COAGULATION [None]
